APPROVED DRUG PRODUCT: CEFADROXIL
Active Ingredient: CEFADROXIL/CEFADROXIL HEMIHYDRATE
Strength: EQ 250MG BASE/5ML
Dosage Form/Route: FOR SUSPENSION;ORAL
Application: A065278 | Product #001
Applicant: ANI PHARMACEUTICALS INC
Approved: Jan 20, 2006 | RLD: No | RS: No | Type: DISCN